FAERS Safety Report 17971146 (Version 2)
Quarter: 2021Q2

REPORT INFORMATION
  Report Type: Spontaneous
  Country: DE (occurrence: DE)
  Receive Date: 20200702
  Receipt Date: 20210425
  Transmission Date: 20210717
  Serious: No
  Sender: FDA-Public Use
  Company Number: DE-LUPIN PHARMACEUTICALS INC.-2020-02610

PATIENT
  Sex: Female

DRUGS (1)
  1. QUETIAPIN?HORMOSAN 50 MG RETARDTABLETTEN [Suspect]
     Active Substance: QUETIAPINE FUMARATE
     Indication: PRODUCT USED FOR UNKNOWN INDICATION
     Dosage: 50 MILLIGRAM, UNK (STARTED ABOUT 3 YEARS AGO)
     Route: 065

REACTIONS (1)
  - Adverse drug reaction [Unknown]
